FAERS Safety Report 16328273 (Version 1)
Quarter: 2019Q2

REPORT INFORMATION
  Report Type: Spontaneous
  Country: US (occurrence: US)
  Receive Date: 20190518
  Receipt Date: 20190518
  Transmission Date: 20190711
  Serious: No
  Sender: FDA-Public Use
  Company Number: US-CONCORDIA PHARMACEUTICALS INC.-GSH201809-003345

PATIENT
  Sex: Female

DRUGS (3)
  1. HYDROXYCHLOROQUINE [Suspect]
     Active Substance: HYDROXYCHLOROQUINE
  2. ENBREL [Suspect]
     Active Substance: ETANERCEPT
  3. HUMIRA [Suspect]
     Active Substance: ADALIMUMAB

REACTIONS (1)
  - Hypersensitivity [Unknown]
